FAERS Safety Report 6338482-0 (Version None)
Quarter: 2009Q3

REPORT INFORMATION
  Report Type: 
  Country: None (occurrence: None)
  Receive Date: 20090901
  Receipt Date: 20090828
  Transmission Date: 20100115
  Serious: Yes (Life-Threatening, Hospitalization)
  Sender: FDA-Public Use
  Company Number: GXKR2009DE09642

PATIENT
  Age: 68 Year
  Sex: Female
  Weight: 84 kg

DRUGS (6)
  1. PREDNISOLONE TAB [Suspect]
     Indication: PSORIATIC ARTHROPATHY
     Dosage: 2.5 MG, QD, ORAL
     Route: 048
     Dates: start: 20081101
  2. LANTAREL      (METHOTREXATE SODIUM) TABLET [Suspect]
     Indication: PSORIATIC ARTHROPATHY
     Dosage: 7.5 MG, QD, ORAL
     Route: 048
     Dates: start: 20081101
  3. FOLIC ACID [Concomitant]
  4. METOPROLOL TARTRATE [Concomitant]
  5. PANTOPRAZOLE SODIUM [Concomitant]
  6. FOLIC ACID [Concomitant]

REACTIONS (1)
  - PULMONARY EMBOLISM [None]
